FAERS Safety Report 24001971 (Version 1)
Quarter: 2024Q2

REPORT INFORMATION
  Report Type: Spontaneous
  Country: US (occurrence: US)
  Receive Date: 20240622
  Receipt Date: 20240622
  Transmission Date: 20240715
  Serious: Yes (Hospitalization)
  Sender: FDA-Public Use
  Company Number: US-Indoco-000563

PATIENT
  Age: 6 Year
  Sex: Female
  Weight: 24.5 kg

DRUGS (3)
  1. ALLOPURINOL [Suspect]
     Active Substance: ALLOPURINOL
     Indication: Tumour lysis syndrome
  2. DEXAMETHASONE [Concomitant]
     Active Substance: DEXAMETHASONE
     Indication: B precursor type acute leukaemia
     Dosage: ON DAY-2 STARTED
  3. VINCRISTINE [Concomitant]
     Active Substance: VINCRISTINE
     Indication: B precursor type acute leukaemia
     Dosage: ON DAY-2 STARTED

REACTIONS (1)
  - Nephrolithiasis [Recovered/Resolved]
